FAERS Safety Report 11913569 (Version 4)
Quarter: 2016Q1

REPORT INFORMATION
  Report Type: Spontaneous
  Country: DK (occurrence: DK)
  Receive Date: 20160113
  Receipt Date: 20160307
  Transmission Date: 20160526
  Serious: Yes (Other)
  Sender: FDA-Public Use
  Company Number: DK-BAXTER-2016BAX001135

PATIENT
  Sex: Female

DRUGS (5)
  1. NATULAN [Suspect]
     Active Substance: PROCARBAZINE HYDROCHLORIDE
     Indication: HODGKIN^S DISEASE
     Dosage: 2 SERIES OF COPP AND 2 SERIES OF OPPA
     Route: 065
     Dates: start: 20050310, end: 20050725
  2. SENDOXAN [Suspect]
     Active Substance: CYCLOPHOSPHAMIDE
     Indication: HODGKIN^S DISEASE
     Dosage: 2 SERIES OF COPP
     Route: 065
     Dates: start: 20050310, end: 20050725
  3. ADRIAMYCIN [Suspect]
     Active Substance: DOXORUBICIN HYDROCHLORIDE
     Indication: HODGKIN^S DISEASE
     Dosage: 2 SERIES OF OPPA
     Route: 065
     Dates: start: 20050310, end: 20050725
  4. ONCOVIN [Suspect]
     Active Substance: VINCRISTINE SULFATE
     Indication: HODGKIN^S DISEASE
     Dosage: 2 SERIES OF COPP AND 2 SERIES OF OPPA
     Route: 065
     Dates: start: 20050310, end: 20050725
  5. PREDNISOLON [Suspect]
     Active Substance: PREDNISOLONE
     Indication: HODGKIN^S DISEASE
     Dosage: 2 SERIES OF COPP AND 2 SERIES OF OPPA
     Route: 065
     Dates: start: 20050310, end: 20050725

REACTIONS (3)
  - Bone infarction [Recovered/Resolved with Sequelae]
  - Joint destruction [Not Recovered/Not Resolved]
  - Synovitis [Not Recovered/Not Resolved]
